FAERS Safety Report 7818627-3 (Version None)
Quarter: 2011Q4

REPORT INFORMATION
  Report Type: 
  Country: None (occurrence: None)
  Receive Date: 20111017
  Receipt Date: 20111011
  Transmission Date: 20120403
  Serious: Yes (Life-Threatening, Hospitalization, Other)
  Sender: FDA-Public Use
  Company Number: US-ASTRAZENECA-2010SE34947

PATIENT
  Age: 58 Year
  Sex: Female

DRUGS (2)
  1. OMEPRAZOLE [Suspect]
     Indication: GASTROOESOPHAGEAL REFLUX DISEASE
     Route: 048
  2. NEXIUM [Suspect]
     Indication: GASTROOESOPHAGEAL REFLUX DISEASE
     Route: 048

REACTIONS (6)
  - CARDIAC FAILURE [None]
  - DRUG INEFFECTIVE [None]
  - APPARENT DEATH [None]
  - GASTRITIS [None]
  - RENAL FAILURE CHRONIC [None]
  - ABDOMINAL DISCOMFORT [None]
